FAERS Safety Report 6111722-9 (Version None)
Quarter: 2009Q1

REPORT INFORMATION
  Report Type: 
  Country: None (occurrence: None)
  Receive Date: 20090311
  Receipt Date: 20090227
  Transmission Date: 20090719
  Serious: Yes (Other)
  Sender: FDA-Public Use
  Company Number: PHHY2008JP25988

PATIENT
  Sex: Male
  Weight: 87 kg

DRUGS (8)
  1. NEORAL [Suspect]
     Indication: RENAL TRANSPLANT
     Dosage: 200 MG, BID
     Route: 048
     Dates: start: 20080607, end: 20080613
  2. THYRADIN [Suspect]
     Indication: HYPOTHYROIDISM
     Dosage: 25 MG/DAY
     Route: 048
     Dates: start: 20080529
  3. CALCIUM POLYSTYRENE SULFONATE [Concomitant]
     Route: 048
  4. OLMETEC [Concomitant]
     Route: 048
  5. LANDEL [Concomitant]
     Route: 048
  6. DOXAZOSIN MESYLATE [Concomitant]
     Route: 048
  7. MERCKMEZIN [Concomitant]
     Dosage: UNK
     Route: 048
  8. TACROLIMUS [Concomitant]

REACTIONS (12)
  - BLOOD CREATINE PHOSPHOKINASE INCREASED [None]
  - BLOOD CREATININE INCREASED [None]
  - FATIGUE [None]
  - IMMUNOSUPPRESSANT DRUG LEVEL INCREASED [None]
  - MALAISE [None]
  - METABOLIC DISORDER [None]
  - MYALGIA [None]
  - MYOGLOBIN BLOOD INCREASED [None]
  - MYOGLOBIN URINE PRESENT [None]
  - PAIN IN EXTREMITY [None]
  - RENAL TRANSPLANT [None]
  - RHABDOMYOLYSIS [None]
